FAERS Safety Report 15712707 (Version 1)
Quarter: 2018Q4

REPORT INFORMATION
  Report Type: Spontaneous
  Country: US (occurrence: US)
  Receive Date: 20181212
  Receipt Date: 20181212
  Transmission Date: 20190205
  Serious: No
  Sender: FDA-Public Use
  Company Number: US-BAYER-2018-231749

PATIENT
  Age: 83 Year
  Sex: Male
  Weight: 84 kg

DRUGS (1)
  1. MIRALAX [Suspect]
     Active Substance: POLYETHYLENE GLYCOL 3350
     Indication: GASTROINTESTINAL DISORDER
     Dosage: 1 PACKET IN 4-8 OUNCES OF A BEVERAGE
     Route: 048
     Dates: start: 20181205

REACTIONS (1)
  - Dry throat [Recovered/Resolved]

NARRATIVE: CASE EVENT DATE: 20181205
